FAERS Safety Report 9692596 (Version 2)
Quarter: 2013Q4

REPORT INFORMATION
  Report Type: Report from Study
  Country: CN (occurrence: CN)
  Receive Date: 20131118
  Receipt Date: 20131206
  Transmission Date: 20140711
  Serious: Yes (Death)
  Sender: FDA-Public Use
  Company Number: CN-ROCHE-1304180

PATIENT
  Age: 53 Year
  Sex: Female
  Weight: 55 kg

DRUGS (4)
  1. BEVACIZUMAB [Suspect]
     Indication: COLON CANCER
     Route: 041
     Dates: start: 20120602, end: 20121027
  2. FLUOROURACIL [Suspect]
     Indication: COLON CANCER
     Route: 041
     Dates: start: 20120602, end: 20121027
  3. OXALIPLATIN [Suspect]
     Indication: COLON CANCER
     Route: 041
     Dates: start: 20120602, end: 20121015
  4. CALCIUM FOLINATE [Suspect]
     Indication: COLON CANCER
     Route: 041
     Dates: start: 20120602, end: 20121015

REACTIONS (2)
  - Death [Fatal]
  - Gastrointestinal haemorrhage [Recovered/Resolved]
